FAERS Safety Report 5178603-9 (Version None)
Quarter: 2006Q4

REPORT INFORMATION
  Report Type: 
  Country: None (occurrence: None)
  Receive Date: 20061218
  Receipt Date: 20060815
  Transmission Date: 20070319
  Serious: No
  Sender: FDA-Public Use
  Company Number: US-AMGEN-KDL190144

PATIENT
  Sex: Female

DRUGS (1)
  1. ENBREL [Suspect]
     Indication: RHEUMATOID ARTHRITIS
     Route: 058
     Dates: start: 20031101

REACTIONS (7)
  - CHOKING [None]
  - DEPRESSION [None]
  - EYE SWELLING [None]
  - SINUSITIS [None]
  - SWELLING FACE [None]
  - TOOTH INFECTION [None]
  - URTICARIA [None]
